FAERS Safety Report 9767919 (Version 1)
Quarter: 2013Q4

REPORT INFORMATION
  Report Type: Spontaneous
  Country: US (occurrence: None)
  Receive Date: 20131213
  Receipt Date: 20131213
  Transmission Date: 20140711
  Serious: Yes (Other)
  Sender: FDA-Public Use
  Company Number: 2013SA028999

PATIENT
  Sex: Male

DRUGS (1)
  1. MENTHOL [Suspect]
     Indication: PRODUCT USED FOR UNKNOWN INDICATION
     Dosage: ONCE; TOPICAL
     Route: 061

REACTIONS (2)
  - Application site pain [None]
  - Application site vesicles [None]
